FAERS Safety Report 9197069 (Version 1)
Quarter: 2013Q1

REPORT INFORMATION
  Report Type: Spontaneous
  Country: FR (occurrence: FR)
  Receive Date: 20130328
  Receipt Date: 20130328
  Transmission Date: 20140127
  Serious: Yes (Hospitalization)
  Sender: FDA-Public Use
  Company Number: FR-BAYER-2013-034816

PATIENT
  Age: 73 Year
  Sex: Female

DRUGS (7)
  1. CIFLOX [Suspect]
     Dosage: 500 MG, BID
     Route: 048
     Dates: start: 20130118, end: 20130124
  2. FLECAINE [Concomitant]
     Dosage: 100 MG, UNK
  3. FUMAFER [Concomitant]
  4. KARDEGIC [Concomitant]
     Dosage: 75 MG, UNK
  5. KEPPRA [Concomitant]
     Dosage: 100 NG/ML, UNK
  6. PARACETAMOL [Concomitant]
  7. NICOPATCH [Concomitant]

REACTIONS (1)
  - Cholestasis [Recovered/Resolved]
